FAERS Safety Report 9842636 (Version 1)
Quarter: 2014Q1

REPORT INFORMATION
  Report Type: Spontaneous
  Country: GB (occurrence: GB)
  Receive Date: 20140124
  Receipt Date: 20140124
  Transmission Date: 20141002
  Serious: Yes (Hospitalization)
  Sender: FDA-Public Use
  Company Number: GB-ACTAVIS-2014-00629

PATIENT
  Age: 64 Year
  Sex: Female

DRUGS (3)
  1. INDAPAMIDE (UNKNOWN) [Suspect]
     Indication: PRODUCT USED FOR UNKNOWN INDICATION
     Dosage: 1.5 MG, DAILY; EVERY MORNING
     Route: 048
     Dates: start: 20131205, end: 20131220
  2. ASPIRIN [Concomitant]
     Indication: PRODUCT USED FOR UNKNOWN INDICATION
     Dosage: 75 MG, DAILY; EVERY MORNING
     Route: 048
  3. ATORVASTATIN [Concomitant]
     Indication: PRODUCT USED FOR UNKNOWN INDICATION
     Dosage: 10 MG, DAILY; EVERY NIGHT
     Route: 048

REACTIONS (2)
  - Hyponatraemia [Recovering/Resolving]
  - Headache [Recovered/Resolved]
